FAERS Safety Report 21188925 (Version 2)
Quarter: 2022Q3

REPORT INFORMATION
  Report Type: Other
  Country: US (occurrence: None)
  Receive Date: 20220809
  Receipt Date: 20220921
  Transmission Date: 20221027
  Serious: Yes (Other)
  Sender: FDA-Public Use
  Company Number: US-ROCHE-3154907

PATIENT
  Sex: Male

DRUGS (9)
  1. OCREVUS [Suspect]
     Active Substance: OCRELIZUMAB
     Indication: Primary progressive multiple sclerosis
     Dosage: INFUSE 10ML (300 MG) INTRAVENOUSLY EVERY ON DAY(S) 1 AND DAY(S) 15 THEN INFUSE 600MG EVERY 6 MONTH(S
     Route: 042
     Dates: start: 20220114
  2. BACLOFEN [Concomitant]
     Active Substance: BACLOFEN
  3. LASIX [Concomitant]
     Active Substance: FUROSEMIDE
  4. LIPITOR [Concomitant]
     Active Substance: ATORVASTATIN CALCIUM
  5. HYDROCHLOROTHIAZIDE [Concomitant]
     Active Substance: HYDROCHLOROTHIAZIDE
  6. OXYBUTYNIN [Concomitant]
     Active Substance: OXYBUTYNIN
  7. POTASSIUM CHLORIDE [Concomitant]
     Active Substance: POTASSIUM CHLORIDE
  8. BENICAR [Concomitant]
     Active Substance: OLMESARTAN MEDOXOMIL
  9. VITAMIN B3 [Concomitant]
     Active Substance: NIACIN

REACTIONS (1)
  - Urinary tract infection [Not Recovered/Not Resolved]
